FAERS Safety Report 19988087 (Version 3)
Quarter: 2022Q1

REPORT INFORMATION
  Report Type: Spontaneous
  Country: IN (occurrence: IN)
  Receive Date: 20211023
  Receipt Date: 20220101
  Transmission Date: 20220423
  Serious: No
  Sender: FDA-Public Use
  Company Number: IN-LUPIN LIMITED-2021-20069

PATIENT

DRUGS (2)
  1. HYDROCHLOROTHIAZIDE\TELMISARTAN [Suspect]
     Active Substance: HYDROCHLOROTHIAZIDE\TELMISARTAN
     Indication: Product used for unknown indication
     Dosage: UNK
     Route: 065
  2. TELMISARTAN [Suspect]
     Active Substance: TELMISARTAN
     Indication: Product used for unknown indication
     Dosage: UNK
     Route: 065

REACTIONS (2)
  - Product dispensing error [Unknown]
  - No adverse event [Unknown]
